FAERS Safety Report 17909574 (Version 4)
Quarter: 2020Q4

REPORT INFORMATION
  Report Type: Report from Study
  Country: None (occurrence: US)
  Receive Date: 20200617
  Receipt Date: 20201114
  Transmission Date: 20210113
  Serious: Yes (Other)
  Sender: FDA-Public Use
  Company Number: US-ABBVIE-20P-163-3447529-00

PATIENT
  Age: 72 Year
  Sex: Male

DRUGS (3)
  1. IMBRUVICA [Suspect]
     Active Substance: IBRUTINIB
     Route: 048
     Dates: start: 20190301
  2. IMBRUVICA [Suspect]
     Active Substance: IBRUTINIB
     Indication: CHRONIC LYMPHOCYTIC LEUKAEMIA
     Route: 048
     Dates: start: 20190301
  3. IMBRUVICA [Suspect]
     Active Substance: IBRUTINIB
     Route: 048
     Dates: start: 20190301

REACTIONS (23)
  - Blood iron decreased [Unknown]
  - Sputum discoloured [Unknown]
  - Cough [Unknown]
  - Gait disturbance [Unknown]
  - Pulmonary congestion [Unknown]
  - Fall [Unknown]
  - Upper respiratory tract infection [Unknown]
  - Arthralgia [Unknown]
  - Asthenia [Unknown]
  - Pyrexia [Unknown]
  - Contusion [Unknown]
  - Dyspnoea [Unknown]
  - Transfusion [Not Recovered/Not Resolved]
  - Serum ferritin decreased [Unknown]
  - Lung disorder [Unknown]
  - Nasal congestion [Unknown]
  - Pulmonary mass [Unknown]
  - Musculoskeletal disorder [Unknown]
  - Fall [Unknown]
  - Illness [Unknown]
  - Haemorrhage [Unknown]
  - Emotional disorder [Unknown]
  - Gastric disorder [Recovered/Resolved]

NARRATIVE: CASE EVENT DATE: 20200615
